FAERS Safety Report 17977806 (Version 1)
Quarter: 2020Q3

REPORT INFORMATION
  Report Type: Spontaneous
  Country: US (occurrence: US)
  Receive Date: 20200703
  Receipt Date: 20200703
  Transmission Date: 20201103
  Serious: Yes (Death, Other)
  Sender: FDA-Public Use
  Company Number: US-GLAXOSMITHKLINE-US2020118547

PATIENT
  Age: 64 Year

DRUGS (1)
  1. ZANTAC [Suspect]
     Active Substance: RANITIDINE HYDROCHLORIDE

REACTIONS (2)
  - Brain neoplasm malignant [Unknown]
  - Lung neoplasm malignant [Fatal]
